FAERS Safety Report 21869361 (Version 2)
Quarter: 2023Q1

REPORT INFORMATION
  Report Type: Spontaneous
  Country: US (occurrence: None)
  Receive Date: 20230117
  Receipt Date: 20230123
  Transmission Date: 20230417
  Serious: Yes (Other)
  Sender: FDA-Public Use
  Company Number: US-ROCHE-3261153

PATIENT
  Sex: Female

DRUGS (3)
  1. XOLAIR [Suspect]
     Active Substance: OMALIZUMAB
     Indication: Idiopathic urticaria
     Route: 058
     Dates: start: 202003
  2. XOLAIR [Suspect]
     Active Substance: OMALIZUMAB
  3. XOLAIR [Suspect]
     Active Substance: OMALIZUMAB

REACTIONS (3)
  - Seizure [Unknown]
  - Postural orthostatic tachycardia syndrome [Unknown]
  - Mastocytosis [Unknown]
